FAERS Safety Report 17533032 (Version 7)
Quarter: 2020Q4

REPORT INFORMATION
  Report Type: Other
  Country: US (occurrence: US)
  Receive Date: 20200312
  Receipt Date: 20201215
  Transmission Date: 20210113
  Serious: Yes (Other)
  Sender: FDA-Public Use
  Company Number: US-ROCHE-2565372

PATIENT
  Age: 75 Year
  Sex: Female
  Weight: 113.4 kg

DRUGS (17)
  1. METFORMIN [Concomitant]
     Active Substance: METFORMIN HYDROCHLORIDE
  2. ALECENSA [Suspect]
     Active Substance: ALECTINIB HYDROCHLORIDE
     Indication: CEREBRAL INFARCTION
  3. LOSARTAN AND HYDROCHLOROTHIAZIDE [Concomitant]
     Active Substance: HYDROCHLOROTHIAZIDE\LOSARTAN POTASSIUM
     Dosage: 100-25 MG
     Route: 048
  4. LASIX [Concomitant]
     Active Substance: FUROSEMIDE
     Route: 048
  5. POTASSIUM CHLORIDE. [Concomitant]
     Active Substance: POTASSIUM CHLORIDE
     Dosage: 40 MEQ/15ML
  6. ALECENSA [Suspect]
     Active Substance: ALECTINIB HYDROCHLORIDE
     Indication: BRONCHIAL CARCINOMA
  7. CEFUROXIME. [Concomitant]
     Active Substance: CEFUROXIME
     Route: 048
  8. ALECENSA [Suspect]
     Active Substance: ALECTINIB HYDROCHLORIDE
     Indication: LUNG NEOPLASM MALIGNANT
     Dosage: TAKE 3 TABLET(S) BY MOUTH TWICE A DAY WITH FOOD
     Route: 048
  9. CALCIUM CARBONATE. [Concomitant]
     Active Substance: CALCIUM CARBONATE
     Route: 048
  10. HYZAAR [Concomitant]
     Active Substance: HYDROCHLOROTHIAZIDE\LOSARTAN POTASSIUM
     Dosage: 100-25MG
     Route: 048
  11. NOVOLOG [Concomitant]
     Active Substance: INSULIN ASPART
     Dosage: 100UNITS/ML, SUBCUTANEOUS SOLUTION
     Route: 058
  12. VITAMIN D3 [Concomitant]
     Active Substance: CHOLECALCIFEROL
     Dosage: 2000 UNITS
     Route: 048
  13. ALECENSA [Suspect]
     Active Substance: ALECTINIB HYDROCHLORIDE
     Indication: METASTASES TO PLEURA
  14. AMLODIPINE [Concomitant]
     Active Substance: AMLODIPINE BESYLATE
     Route: 048
  15. ATORVASTATIN [Concomitant]
     Active Substance: ATORVASTATIN
     Dosage: DAILY AT BEDTIME
     Route: 048
  16. GLIPIZIDE. [Concomitant]
     Active Substance: GLIPIZIDE
     Route: 048
  17. ALBUTEROL. [Concomitant]
     Active Substance: ALBUTEROL
     Dosage: 2.5 MG/3 ML, 2.5MG/3ML, INHALATION SOLUTION EVERY 4 HR
     Route: 048

REACTIONS (3)
  - Cerebrovascular accident [Unknown]
  - Pneumonia [Unknown]
  - Speech disorder [Unknown]

NARRATIVE: CASE EVENT DATE: 20200303
